FAERS Safety Report 9378122 (Version 2)
Quarter: 2013Q3

REPORT INFORMATION
  Report Type: Spontaneous
  Country: JP (occurrence: JP)
  Receive Date: 20130701
  Receipt Date: 20130703
  Transmission Date: 20140515
  Serious: No
  Sender: FDA-Public Use
  Company Number: JP-B.I. PHARMACEUTICALS,INC./RIDGEFIELD-2013-BI-18204NB

PATIENT
  Age: 77 Year
  Sex: Female

DRUGS (2)
  1. PRADAXA [Suspect]
     Route: 048
  2. VASOLAN [Suspect]
     Indication: BRADYCARDIA
     Dosage: 1 ANZ
     Route: 042

REACTIONS (3)
  - Syncope [Unknown]
  - Bradycardia [Unknown]
  - Drug interaction [Unknown]
